FAERS Safety Report 9933772 (Version 2)
Quarter: 2014Q1

REPORT INFORMATION
  Report Type: Report from Study
  Country: US (occurrence: US)
  Receive Date: 20140228
  Receipt Date: 20140228
  Transmission Date: 20141002
  Serious: No
  Sender: FDA-Public Use
  Company Number: US-MYLANLABS-2013S1013450

PATIENT
  Age: 17 Year
  Sex: Male
  Weight: 77.11 kg

DRUGS (1)
  1. AMNESTEEM CAPSULES [Suspect]
     Indication: ACNE
     Route: 048
     Dates: start: 20130419, end: 20130614

REACTIONS (1)
  - Liver function test abnormal [Recovered/Resolved]
